FAERS Safety Report 5640006-8 (Version None)
Quarter: 2008Q1

REPORT INFORMATION
  Report Type: 
  Country: None (occurrence: None)
  Receive Date: 20080226
  Receipt Date: 20080226
  Transmission Date: 20080703
  Serious: Yes (Disabling)
  Sender: FDA-Public Use
  Company Number: None

PATIENT
  Age: 38 Year
  Sex: Female
  Weight: 137 kg

DRUGS (1)
  1. LUPRON [Suspect]
     Indication: ENDOMETRIOSIS
     Dosage: 11.25 MG INJECTION 3 MONTH INJECTION IM
     Route: 030
     Dates: start: 20041215, end: 20050315

REACTIONS (2)
  - ENDOMETRIOSIS [None]
  - SALPINGO-OOPHORECTOMY UNILATERAL [None]
